FAERS Safety Report 6384237-0 (Version None)
Quarter: 2009Q4

REPORT INFORMATION
  Report Type: 
  Country: None (occurrence: None)
  Receive Date: 20091001
  Receipt Date: 20090928
  Transmission Date: 20100525
  Serious: Yes (Hospitalization)
  Sender: FDA-Public Use
  Company Number: B0595715A

PATIENT
  Age: 8 Year
  Sex: Female

DRUGS (6)
  1. SEROXAT [Suspect]
     Dosage: 20MG PER DAY
     Route: 048
  2. DAONIL [Suspect]
     Dosage: 15MG PER DAY
     Route: 048
  3. SINTROM [Suspect]
     Route: 048
  4. COAPROVEL [Concomitant]
     Indication: HYPERTENSION
     Route: 048
  5. CARDISER [Concomitant]
     Dosage: 120MG PER DAY
     Route: 048
  6. DIGOXIN [Concomitant]
     Dosage: .75MG PER DAY
     Route: 048

REACTIONS (4)
  - ASTHENIA [None]
  - DYSPNOEA EXERTIONAL [None]
  - LOWER GASTROINTESTINAL HAEMORRHAGE [None]
  - MELAENA [None]
